FAERS Safety Report 7111373-3 (Version None)
Quarter: 2010Q4

REPORT INFORMATION
  Report Type: 
  Country: None (occurrence: None)
  Receive Date: 20101118
  Receipt Date: 20101110
  Transmission Date: 20110411
  Serious: Yes (Death, Other)
  Sender: FDA-Public Use
  Company Number: PHHY2009US66899

PATIENT
  Sex: Female

DRUGS (1)
  1. EXJADE [Suspect]
     Dosage: 1000 MG, QD
     Route: 048
     Dates: start: 20090619

REACTIONS (7)
  - DEATH [None]
  - DEHYDRATION [None]
  - DYSURIA [None]
  - MENTAL STATUS CHANGES [None]
  - RASH [None]
  - SOMNOLENCE [None]
  - SURGERY [None]
